FAERS Safety Report 8888770 (Version 5)
Quarter: 2013Q3

REPORT INFORMATION
  Report Type: Report from Study
  Country: JP (occurrence: JP)
  Receive Date: 20121106
  Receipt Date: 20130908
  Transmission Date: 20140515
  Serious: Yes (Disabling)
  Sender: FDA-Public Use
  Company Number: JP-SANOFI-AVENTIS-2012SA080199

PATIENT
  Age: 55 Year
  Sex: Male
  Weight: 61.3 kg

DRUGS (10)
  1. PLAVIX [Suspect]
     Indication: ACUTE MYOCARDIAL INFARCTION
     Route: 048
     Dates: start: 20120502, end: 20120502
  2. PLAVIX [Suspect]
     Indication: ACUTE MYOCARDIAL INFARCTION
     Route: 048
     Dates: start: 20120503
  3. ASPIRIN [Concomitant]
     Indication: ACUTE MYOCARDIAL INFARCTION
     Route: 048
     Dates: start: 20120502
  4. ITAVASTATIN [Concomitant]
     Indication: ACUTE MYOCARDIAL INFARCTION
     Route: 048
     Dates: start: 20120502, end: 20130606
  5. ITAVASTATIN [Concomitant]
     Indication: ACUTE MYOCARDIAL INFARCTION
     Route: 048
     Dates: start: 20130607
  6. NICORANDIL [Concomitant]
     Indication: PROPHYLAXIS
     Route: 048
     Dates: start: 20120503
  7. FRANDOL [Concomitant]
     Indication: ACUTE MYOCARDIAL INFARCTION
     Route: 062
     Dates: start: 20120502
  8. FAMOTIDINE [Concomitant]
     Indication: PROPHYLAXIS AGAINST GASTROINTESTINAL ULCER
     Route: 048
     Dates: start: 20120502
  9. TERNELIN [Concomitant]
     Indication: NECK DEFORMITY
     Route: 048
     Dates: start: 20120510, end: 20120523
  10. MAGNESIUM OXIDE [Concomitant]
     Indication: CONSTIPATION
     Route: 048
     Dates: start: 20120502

REACTIONS (3)
  - Retinal artery embolism [Not Recovered/Not Resolved]
  - Visual acuity reduced [Not Recovered/Not Resolved]
  - Visual field defect [Not Recovered/Not Resolved]
